FAERS Safety Report 10380685 (Version 1)
Quarter: 2014Q1

REPORT INFORMATION
  Report Type: Spontaneous
  Country: US (occurrence: None)
  Receive Date: 20140306
  Receipt Date: 20140306
  Transmission Date: 20141002
  Serious: Yes (Other)
  Sender: FDA-Public Use
  Company Number: 163-21880-13092914

PATIENT
  Age: 74 Year
  Sex: Female

DRUGS (1)
  1. REVLIMID (LENALIDOMIDE) (10 MILLIGRAM, CAPSULES) [Suspect]
     Indication: PLASMA CELL MYELOMA
     Route: 048
     Dates: start: 20130823, end: 20130913

REACTIONS (12)
  - Nervousness [None]
  - Balance disorder [None]
  - Aphasia [None]
  - Night sweats [None]
  - Tremor [None]
  - Muscle spasms [None]
  - Pain in jaw [None]
  - Nausea [None]
  - Confusional state [None]
  - Dry mouth [None]
  - Asthenia [None]
  - Dizziness [None]
